FAERS Safety Report 11887211 (Version 7)
Quarter: 2016Q1

REPORT INFORMATION
  Report Type: Report from Study
  Country: BE (occurrence: BE)
  Receive Date: 20160104
  Receipt Date: 20160304
  Transmission Date: 20160526
  Serious: Yes (Death, Hospitalization)
  Sender: FDA-Public Use
  Company Number: BE-ABBVIE-16P-013-1530822-00

PATIENT
  Sex: Female

DRUGS (7)
  1. DAFALGAN [Concomitant]
     Active Substance: ACETAMINOPHEN
     Indication: PRODUCT USED FOR UNKNOWN INDICATION
  2. CLOZAN [Concomitant]
     Indication: PRODUCT USED FOR UNKNOWN INDICATION
  3. DUODOPA [Suspect]
     Active Substance: CARBIDOPA\LEVODOPA
     Dosage: DOSAGE CONTINUOUSLY MONITORED AND ADJUSTED
     Route: 050
     Dates: start: 20100614, end: 20151104
  4. DUODOPA [Suspect]
     Active Substance: CARBIDOPA\LEVODOPA
     Dosage: AM=2.8ML;CD=2.9/HR DURING 16HRS;ED=2ML; ND=2ML/HR DURING 8HRS
     Route: 050
     Dates: start: 20160122, end: 20160122
  5. DUODOPA [Suspect]
     Active Substance: CARBIDOPA\LEVODOPA
     Indication: PARKINSON^S DISEASE
     Dosage: AM DOSE=4ML, CD=2.71.5MLML/H FOR 16HRS AND ED=
     Route: 050
     Dates: start: 20100426, end: 20100614
  6. DUODOPA [Suspect]
     Active Substance: CARBIDOPA\LEVODOPA
     Dosage: AM=2.8ML;CD=2.9/HR DURING 16HRS;ED=2ML; ND=2ML/HR DURING 8HRS
     Route: 050
     Dates: start: 20160122
  7. DUODOPA [Suspect]
     Active Substance: CARBIDOPA\LEVODOPA
     Dosage: AM DOSE=2.8ML, CD=2.9ML/H FOR 16HRS AND ED=2ML
     Route: 050
     Dates: start: 20151104, end: 20160122

REACTIONS (9)
  - Death [Fatal]
  - Device use error [Unknown]
  - Impaired self-care [Unknown]
  - Device occlusion [Unknown]
  - Cognitive disorder [Not Recovered/Not Resolved]
  - General physical health deterioration [Not Recovered/Not Resolved]
  - Faecaloma [Unknown]
  - Confusional state [Unknown]
  - Incorrect route of drug administration [Recovered/Resolved]
